FAERS Safety Report 14348098 (Version 1)
Quarter: 2018Q1

REPORT INFORMATION
  Report Type: Spontaneous
  Country: DE (occurrence: DE)
  Receive Date: 20180103
  Receipt Date: 20180103
  Transmission Date: 20180509
  Serious: Yes (Other)
  Sender: FDA-Public Use
  Company Number: PHHY2017DE191387

PATIENT
  Sex: Male

DRUGS (2)
  1. BETAMETHASONE. [Suspect]
     Active Substance: BETAMETHASONE
     Indication: FOETAL EXPOSURE DURING PREGNANCY
     Dosage: MATERANL DOSE: 12 MG, BID, EVERY 24 HOURS
     Route: 064
  2. PRESINOL [Suspect]
     Active Substance: METHYLDOPA
     Indication: FOETAL EXPOSURE DURING PREGNANCY
     Dosage: MATERNAL DOSE: 250 MG, Q6H
     Route: 064

REACTIONS (4)
  - Foetal exposure during pregnancy [Unknown]
  - Bradycardia [Unknown]
  - Low birth weight baby [Unknown]
  - Premature baby [Unknown]
